FAERS Safety Report 17636679 (Version 1)
Quarter: 2020Q2

REPORT INFORMATION
  Report Type: Spontaneous
  Country: US (occurrence: US)
  Receive Date: 20200405
  Receipt Date: 20200405
  Transmission Date: 20200713
  Serious: Yes (Other)
  Sender: FDA-Public Use
  Company Number: None

PATIENT
  Age: 58 Year
  Sex: Female
  Weight: 78.75 kg

DRUGS (19)
  1. ROPINEROLE [Concomitant]
     Active Substance: ROPINIROLE
  2. VITAMIN B12 [Concomitant]
     Active Substance: CYANOCOBALAMIN
  3. TROSPIUM CHLORIDE ER [Concomitant]
     Active Substance: TROSPIUM CHLORIDE
  4. LORATADINE. [Concomitant]
     Active Substance: LORATADINE
  5. ZALEPLON. [Concomitant]
     Active Substance: ZALEPLON
  6. ALPRAZOLAM. [Concomitant]
     Active Substance: ALPRAZOLAM
  7. BOWMAR NUTRITION PROTEIN SHAKE [Concomitant]
  8. VITAMIN D3 [Concomitant]
     Active Substance: CHOLECALCIFEROL
  9. OXYCODONE/APAP [Concomitant]
     Active Substance: ACETAMINOPHEN\OXYCODONE HYDROCHLORIDE
  10. PANTROPRAZOLE [Concomitant]
  11. JUICE PLUS VEGETABLE + FRUIT BLEND GUMMIES [Concomitant]
  12. PROMETHAZINE [Concomitant]
     Active Substance: PROMETHAZINE HYDROCHLORIDE
  13. MEGARED OMEGA-3 [Concomitant]
  14. AIMOVIG [Suspect]
     Active Substance: ERENUMAB-AOOE
     Indication: MIGRAINE
     Dosage: ?          QUANTITY:1 INJECTION(S);OTHER FREQUENCY:ONE A MONTH;?
     Route: 030
     Dates: start: 20200312, end: 20200405
  15. HORIZANT [Concomitant]
     Active Substance: GABAPENTIN ENACARBIL
  16. CYCLOBENZAPRINE. [Concomitant]
     Active Substance: CYCLOBENZAPRINE
  17. FENTANYL. [Concomitant]
     Active Substance: FENTANYL
  18. DICLOFENAC SODIUM. [Concomitant]
     Active Substance: DICLOFENAC SODIUM
  19. MUCINEX DM [Concomitant]
     Active Substance: DEXTROMETHORPHAN HYDROBROMIDE\GUAIFENESIN

REACTIONS (7)
  - Anxiety [None]
  - Insomnia [None]
  - Hypertension [None]
  - Chest pain [None]
  - Dyspnoea [None]
  - Restlessness [None]
  - Neck pain [None]

NARRATIVE: CASE EVENT DATE: 20200315
